FAERS Safety Report 9675759 (Version 3)
Quarter: 2013Q4

REPORT INFORMATION
  Report Type: Spontaneous
  Country: CH (occurrence: CH)
  Receive Date: 20131107
  Receipt Date: 20131122
  Transmission Date: 20140711
  Serious: Yes (Hospitalization)
  Sender: FDA-Public Use
  Company Number: CH-PFIZER INC-2013317116

PATIENT
  Age: 78 Year
  Sex: Male

DRUGS (15)
  1. AMLODIPIN [Suspect]
     Dosage: 5 MG, 1X/DAY
     Route: 048
  2. INSPRA [Suspect]
     Dosage: 25 MG, 1X/DAY
     Route: 048
  3. TORASEMIDE [Suspect]
     Dosage: 5 MG, 1X/DAY
     Route: 048
  4. ENALAPRIL [Suspect]
     Dosage: 7.5 MG, 2X/DAY
     Route: 048
  5. PHYSIOTENS [Suspect]
     Dosage: 0.2 MG, 2X/DAY
     Route: 048
  6. CLOPIDOGREL [Concomitant]
     Dosage: 75 MG, 1X/DAY
     Route: 048
  7. MG 5 - LONGORAL [Concomitant]
     Dosage: 12 MMOL, 1X/DAY
  8. POTASSIUM [Concomitant]
     Dosage: 30 MMOL, 3X/DAY
     Route: 048
  9. CRESTOR [Concomitant]
     Dosage: 10 MG, 1X/DAY
     Route: 048
  10. VI-DE 3 [Concomitant]
     Dosage: 800 IU, 1X/DAY
     Route: 048
  11. NEXIUM [Concomitant]
     Dosage: 40 MG, 2X/DAY
     Route: 041
  12. CLEXANE [Concomitant]
     Dosage: 40 MG, 1X/DAY
     Route: 058
  13. OLIMEL [Concomitant]
     Dosage: 1500 ML, 1X/DAY
  14. CERNEVIT [Concomitant]
  15. ADDAMEL [Concomitant]

REACTIONS (4)
  - Gastric ulcer [Unknown]
  - Polyp [Unknown]
  - Diarrhoea [Unknown]
  - Weight decreased [Unknown]
